FAERS Safety Report 4853348-0 (Version None)
Quarter: 2005Q4

REPORT INFORMATION
  Report Type: 
  Country: None (occurrence: None)
  Receive Date: 20051212
  Receipt Date: 20051208
  Transmission Date: 20060501
  Serious: Yes (Life-Threatening)
  Sender: FDA-Public Use
  Company Number: 2005-UK-02573UK

PATIENT
  Age: 82 Year
  Sex: Female

DRUGS (1)
  1. ORAMORPH SR [Suspect]
     Dosage: 15 MG, PO
     Route: 048
     Dates: start: 20051130, end: 20051130

REACTIONS (2)
  - ANAPHYLACTIC REACTION [None]
  - REACTION TO PRESERVATIVES [None]
